FAERS Safety Report 17369426 (Version 1)
Quarter: 2020Q1

REPORT INFORMATION
  Report Type: Spontaneous
  Country: US (occurrence: US)
  Receive Date: 20200121
  Receipt Date: 20200121
  Transmission Date: 20200409
  Serious: Yes (Other)
  Sender: FDA-Public Use
  Company Number: None

PATIENT
  Age: 80 Year
  Sex: Male

DRUGS (1)
  1. ACETYLCYSTEINE (ACETYLCYSTEINE 20% SOLN, INHL, 4ML) [Suspect]
     Active Substance: ACETYLCYSTEINE
     Indication: DYSPNOEA
     Route: 055
     Dates: start: 20191226, end: 20191226

REACTIONS (4)
  - Tachypnoea [None]
  - Diarrhoea [None]
  - Hypertension [None]
  - Tachycardia [None]

NARRATIVE: CASE EVENT DATE: 20191226
